FAERS Safety Report 8134783-4 (Version None)
Quarter: 2012Q1

REPORT INFORMATION
  Report Type: 
  Country: None (occurrence: None)
  Receive Date: 20120214
  Receipt Date: 20120208
  Transmission Date: 20120608
  Serious: No
  Sender: FDA-Public Use
  Company Number: US-PFIZER INC-2012035044

PATIENT
  Sex: Female
  Weight: 102.49 kg

DRUGS (8)
  1. BENICAR [Concomitant]
     Dosage: UNK
  2. LEVOXYL [Concomitant]
     Indication: THYROID DISORDER
     Dosage: UNK
  3. SIMVASTATIN [Concomitant]
     Indication: BLOOD CHOLESTEROL INCREASED
     Dosage: UNK
  4. ACETYLSALICYLIC ACID [Concomitant]
     Dosage: UNK
  5. LYRICA [Suspect]
     Indication: ARTHRALGIA
     Dosage: UNK, 1X/DAY
     Route: 048
  6. OMEPRAZOLE [Concomitant]
     Dosage: UNK
  7. HYDROCHLOROTHIAZIDE [Concomitant]
     Indication: HYPERTENSION
     Dosage: UNK
  8. LYRICA [Suspect]
     Indication: PAIN

REACTIONS (2)
  - FALL [None]
  - BACK INJURY [None]
